FAERS Safety Report 21356734 (Version 2)
Quarter: 2022Q3

REPORT INFORMATION
  Report Type: Spontaneous
  Country: US (occurrence: None)
  Receive Date: 20220920
  Receipt Date: 20220923
  Transmission Date: 20221027
  Serious: Yes (Other)
  Sender: FDA-Public Use
  Company Number: 2022A316454

PATIENT
  Age: 50 Year
  Sex: Female

DRUGS (4)
  1. FASLODEX [Suspect]
     Active Substance: FULVESTRANT
     Indication: Breast cancer
     Dosage: 500/10 MG/ML, EVERY FOUR WEEKS
     Route: 030
     Dates: start: 202203, end: 20220909
  2. IBRANCE [Suspect]
     Active Substance: PALBOCICLIB
     Indication: Breast cancer stage IV
     Route: 048
     Dates: start: 20220325
  3. FEMARA [Concomitant]
     Active Substance: LETROZOLE
  4. TAMOXIFEN [Concomitant]
     Active Substance: TAMOXIFEN
     Route: 048

REACTIONS (16)
  - Ocular hyperaemia [Unknown]
  - Malignant neoplasm progression [Unknown]
  - Nerve injury [Unknown]
  - Anal incontinence [Unknown]
  - Contusion [Unknown]
  - Haemorrhage [Unknown]
  - Hypotension [Unknown]
  - Injection site erythema [Unknown]
  - Vomiting [Unknown]
  - Illness [Unknown]
  - Dyspepsia [Unknown]
  - Irritable bowel syndrome [Unknown]
  - Gastritis [Unknown]
  - Growth retardation [Unknown]
  - Arthralgia [Unknown]
  - Weight decreased [Unknown]

NARRATIVE: CASE EVENT DATE: 20220101
